FAERS Safety Report 5095813-X (Version None)
Quarter: 2006Q3

REPORT INFORMATION
  Report Type: 
  Country: None (occurrence: None)
  Receive Date: 20060905
  Receipt Date: 20060823
  Transmission Date: 20061208
  Serious: Yes (Other)
  Sender: FDA-Public Use
  Company Number: US-JNJFOC-20060201272

PATIENT
  Sex: Male
  Weight: 158.76 kg

DRUGS (2)
  1. LEVAQUIN [Suspect]
     Route: 048
  2. LEVAQUIN [Suspect]
     Indication: INFECTION
     Route: 048

REACTIONS (5)
  - DRUG HYPERSENSITIVITY [None]
  - GENERALISED OEDEMA [None]
  - HYPOTHYROIDISM [None]
  - RHEUMATOID ARTHRITIS [None]
  - THYROID DISORDER [None]
